FAERS Safety Report 16750020 (Version 2)
Quarter: 2019Q3

REPORT INFORMATION
  Report Type: Report from Study
  Country: CN (occurrence: CN)
  Receive Date: 20190828
  Receipt Date: 20190906
  Transmission Date: 20191005
  Serious: Yes (Other)
  Sender: FDA-Public Use
  Company Number: CN-AMGEN-CHNCT2019136618

PATIENT
  Age: 31 Year
  Sex: Male
  Weight: 72.8 kg

DRUGS (36)
  1. CALCIUM GLUCONATE. [Concomitant]
     Active Substance: CALCIUM GLUCONATE
     Dosage: 10 MILLILITER AND 1 GRAM
     Route: 042
     Dates: start: 20190526, end: 20190708
  2. MAGNESIUM ISOGLYCYRRHIZINATE [Concomitant]
     Active Substance: MAGNESIUM ISOGLYCYRRHIZINATE
     Dosage: 100 MILLIGRAM
     Route: 042
     Dates: start: 20190530, end: 20190709
  3. OXYCODONE AND ACETAMINOPHEN [Concomitant]
     Active Substance: ACETAMINOPHEN\OXYCODONE HYDROCHLORIDE
     Dosage: 1 UNK
     Route: 048
     Dates: start: 20190604, end: 201906
  4. OMEPRAZOLE SODIUM [Concomitant]
     Active Substance: OMEPRAZOLE SODIUM
     Dosage: 40 MILLIGRAM
     Route: 042
     Dates: start: 20190605, end: 20190625
  5. TOCILIZUMAB. [Concomitant]
     Active Substance: TOCILIZUMAB
     Dosage: 160 MILLIGRAM
     Route: 042
     Dates: start: 20190614, end: 20190614
  6. MEROPENEM. [Concomitant]
     Active Substance: MEROPENEM
     Dosage: 1 GRAM
     Route: 042
     Dates: start: 20190614, end: 20190624
  7. BLINATUMOMAB [Suspect]
     Active Substance: BLINATUMOMAB
     Indication: B PRECURSOR TYPE ACUTE LEUKAEMIA
     Dosage: 9 MICROGRAM, QD
     Route: 042
     Dates: start: 20190604
  8. METHOTREXATE. [Concomitant]
     Active Substance: METHOTREXATE
     Dosage: 10-500 MILLIGRAM
     Dates: start: 20190522, end: 20190706
  9. CEFOPERAZONE SODIUM AND SULBACTAM SODIUM [Concomitant]
     Active Substance: CEFOPERAZONE SODIUM\SULBACTAM SODIUM
     Dosage: 3 GRAM
     Route: 042
     Dates: start: 20190625, end: 20190708
  10. TRAMADOL HYDROCHLORIDE. [Concomitant]
     Active Substance: TRAMADOL HYDROCHLORIDE
     Dosage: 50-100 MILLIGRAM
     Route: 048
     Dates: start: 20190613, end: 201907
  11. VITAMIN B [Concomitant]
     Active Substance: VITAMIN B
     Dosage: 10 MILLIGRAM
     Route: 048
     Dates: start: 20190704, end: 201907
  12. SODIUM BICARBONATE. [Concomitant]
     Active Substance: SODIUM BICARBONATE
     Dosage: 80 MILLILITER
     Route: 042
     Dates: start: 20190524, end: 20190706
  13. ORNIDAZOLE;SODIUM CHLORIDE [Concomitant]
     Dosage: 0.5-1 GRAM
     Route: 042
     Dates: start: 20190620, end: 20190708
  14. METRONIDAZOLE. [Concomitant]
     Active Substance: METRONIDAZOLE
     Dosage: 0.5 GRAM
     Route: 050
     Dates: start: 20190629, end: 20190629
  15. BLINATUMOMAB [Suspect]
     Active Substance: BLINATUMOMAB
     Dosage: 28 MICROGRAM, QD
     Route: 042
     Dates: start: 20190620, end: 20190705
  16. POTASSIUM CHLORIDE. [Concomitant]
     Active Substance: POTASSIUM CHLORIDE
     Dosage: 500-1000 MILLIGRAM
     Route: 048
     Dates: start: 20190521, end: 201907
  17. POSACONAZOLE [Concomitant]
     Active Substance: POSACONAZOLE
     Dosage: 200 MILLIGRAM
     Route: 048
     Dates: start: 20190603, end: 201906
  18. POLYENE PHOSPHATIDYLCHOLINE [Concomitant]
     Active Substance: PHOSPHOLIPID
     Dosage: 930 MILLIGRAM
     Route: 042
     Dates: start: 20190605, end: 20190709
  19. WYCAKON-G [Concomitant]
     Dosage: 100 MILLIGRAM
     Route: 048
     Dates: start: 20190523, end: 20190709
  20. BLINATUMOMAB [Suspect]
     Active Substance: BLINATUMOMAB
     Dosage: 9 MICROGRAM, QD
     Route: 042
     Dates: start: 20190613
  21. DEXAMETHASONE SODIUM PHOSPHATE. [Concomitant]
     Active Substance: DEXAMETHASONE SODIUM PHOSPHATE
     Dosage: 3-20 MILLIGRAM
     Dates: start: 20190522, end: 20190709
  22. TROPISETRON HYDROCHLORIDE [Concomitant]
     Active Substance: TROPISETRON HYDROCHLORIDE
     Dosage: 5 MILLIGRAM
     Route: 042
     Dates: start: 20190706, end: 20190706
  23. CALCIUM FOLINATE [Concomitant]
     Active Substance: LEUCOVORIN CALCIUM
     Dosage: 12-25 MILLIGRAM
     Route: 050
     Dates: start: 20190706, end: 20190709
  24. CALCIUM CARBONATE W/COLECALCIFEROL [Concomitant]
     Active Substance: CALCIUM CARBONATE\CHOLECALCIFEROL
     Dosage: 1 UNK
     Route: 048
     Dates: start: 20190603, end: 20190710
  25. ALBUMIN PREPARED FROM HUMAN PLASMA [Concomitant]
     Dosage: 20 GRAM
     Route: 042
     Dates: start: 20190613, end: 20190616
  26. DEXAMETHASONE. [Concomitant]
     Active Substance: DEXAMETHASONE
     Dosage: 20 MILLIGRAM
     Dates: start: 20190604, end: 20190620
  27. OMEPRAZOLE MAGNESIUM. [Concomitant]
     Active Substance: OMEPRAZOLE MAGNESIUM
     Dosage: 20 MILLIGRAM
     Route: 048
     Dates: start: 20190603, end: 20190709
  28. BUCINNAZINE HYDROCHLORIDE [Concomitant]
     Dosage: 100 MILLIGRAM
     Route: 030
     Dates: start: 20190604, end: 20190614
  29. MECOBALAMIN [Concomitant]
     Active Substance: METHYLCOBALAMIN
     Dosage: 0.5 MILLIGRAM
     Route: 048
     Dates: start: 20190605, end: 20190625
  30. SPIRONOLACTONE. [Concomitant]
     Active Substance: SPIRONOLACTONE
     Dosage: 20 MILLIGRAM
     Route: 048
     Dates: start: 20190613, end: 20190710
  31. GABAPENTIN. [Concomitant]
     Active Substance: GABAPENTIN
     Dosage: 0.3 GRAM
     Route: 048
     Dates: start: 20190704, end: 20190709
  32. FUROSEMIDE. [Concomitant]
     Active Substance: FUROSEMIDE
     Dosage: 10-20 MILLIGRAM
     Route: 042
     Dates: start: 20190611, end: 20190707
  33. ALLOPURINOL. [Concomitant]
     Active Substance: ALLOPURINOL
     Dosage: 0.25 GRAM
     Route: 048
     Dates: start: 20190524, end: 20190605
  34. CEFTAZIDIME. [Concomitant]
     Active Substance: CEFTAZIDIME
     Dosage: 2 GRAM
     Route: 042
     Dates: start: 20190605, end: 20190614
  35. REDUCED GLUTATHIONE SODIUM [Concomitant]
     Active Substance: GLUTATHIONE
     Dosage: 1.8 GRAM
     Route: 042
     Dates: start: 20190605, end: 20190709
  36. POTASSIUM CITRATE. [Concomitant]
     Active Substance: POTASSIUM CITRATE
     Dosage: 1.45-2.9 GRAM
     Route: 048
     Dates: start: 20190612, end: 201906

REACTIONS (1)
  - Transformation to acute myeloid leukaemia [Not Recovered/Not Resolved]

NARRATIVE: CASE EVENT DATE: 20190710
